FAERS Safety Report 7142064-0 (Version None)
Quarter: 2010Q4

REPORT INFORMATION
  Report Type: 
  Country: None (occurrence: None)
  Receive Date: 20101207
  Receipt Date: 20101130
  Transmission Date: 20110411
  Serious: Yes (Hospitalization)
  Sender: FDA-Public Use
  Company Number: B0687728A

PATIENT
  Sex: Male

DRUGS (1)
  1. AUGMENTIN [Suspect]
     Route: 048
     Dates: start: 20101003, end: 20101003

REACTIONS (5)
  - ABDOMINAL PAIN UPPER [None]
  - CHEST PAIN [None]
  - MALAISE [None]
  - PARAESTHESIA [None]
  - PRESYNCOPE [None]
